FAERS Safety Report 20254857 (Version 2)
Quarter: 2022Q1

REPORT INFORMATION
  Report Type: Spontaneous
  Country: FR (occurrence: FR)
  Receive Date: 20211230
  Receipt Date: 20220209
  Transmission Date: 20220424
  Serious: Yes (Other)
  Sender: FDA-Public Use
  Company Number: None

PATIENT
  Age: 73 Year
  Sex: Male
  Weight: 76.3 kg

DRUGS (4)
  1. ELTROMBOPAG OLAMINE [Interacting]
     Active Substance: ELTROMBOPAG OLAMINE
     Indication: Bone marrow failure
     Dosage: 25 MG, QD
     Route: 048
     Dates: start: 20211018
  2. NEORAL [Interacting]
     Active Substance: CYCLOSPORINE
     Indication: Bone marrow failure
     Dosage: 100 MG, QD
     Route: 048
     Dates: start: 20211021
  3. LINEZOLID [Suspect]
     Active Substance: LINEZOLID
     Indication: Infection
     Dosage: 600 MG, QD
     Route: 048
     Dates: end: 20211201
  4. ATORVASTATIN [Interacting]
     Active Substance: ATORVASTATIN
     Indication: Prophylaxis
     Dosage: 40 MG, QD
     Route: 048
     Dates: start: 2020, end: 20211201

REACTIONS (2)
  - Rhabdomyolysis [Recovered/Resolved]
  - Drug interaction [Recovered/Resolved]

NARRATIVE: CASE EVENT DATE: 20211021
